FAERS Safety Report 9895838 (Version 2)
Quarter: 2014Q1

REPORT INFORMATION
  Report Type: Spontaneous
  Country: US (occurrence: US)
  Receive Date: 20140213
  Receipt Date: 20140213
  Transmission Date: 20141002
  Serious: No
  Sender: FDA-Public Use
  Company Number: US-BRISTOL-MYERS SQUIBB COMPANY-17248006

PATIENT
  Age: 50 Year
  Sex: Female

DRUGS (11)
  1. ABATACEPT SUBQ INJECTION 125MG/ML [Suspect]
     Indication: PSORIATIC ARTHROPATHY
     Dosage: 1 DF: 750MG IV 1ST DOSE?125MG SC /WEEK
     Route: 058
     Dates: start: 20121023, end: 20130205
  2. ETODOLAC [Concomitant]
  3. FUROSEMIDE [Concomitant]
  4. TYLENOL [Concomitant]
  5. VITAMIN D [Concomitant]
  6. FOLIC ACID [Concomitant]
  7. METOPROLOL [Concomitant]
  8. OMEPRAZOLE [Concomitant]
  9. SPIRONOLACTONE [Concomitant]
  10. TRAMADOL [Concomitant]
  11. TRIMETHAPHAN CAMSYLATE [Concomitant]

REACTIONS (1)
  - Upper respiratory tract infection [Recovered/Resolved]
